FAERS Safety Report 5585974-8 (Version None)
Quarter: 2008Q1

REPORT INFORMATION
  Report Type: 
  Country: None (occurrence: None)
  Receive Date: 20080104
  Receipt Date: 20071220
  Transmission Date: 20080703
  Serious: Yes (Hospitalization)
  Sender: FDA-Public Use
  Company Number: 2007BI025324

PATIENT
  Age: 40 Year
  Sex: Female
  Weight: 63.5036 kg

DRUGS (10)
  1. TYSABRI [Suspect]
     Indication: MULTIPLE SCLEROSIS
     Dosage: 300 MG; QM; IV
     Route: 042
     Dates: start: 20071017
  2. BACLOFEN [Concomitant]
  3. EXCEDRIN (MIGRAINE) [Concomitant]
  4. CYMBALTA [Concomitant]
  5. CALCIUM [Concomitant]
  6. IBUPROFEN [Concomitant]
  7. FAMOTIDINE [Concomitant]
  8. DITROPAN XL [Concomitant]
  9. PROPRANOLOL [Concomitant]
  10. PRIMIDONE [Concomitant]

REACTIONS (2)
  - ABSCESS [None]
  - DECUBITUS ULCER [None]
